FAERS Safety Report 8548662-1 (Version None)
Quarter: 2012Q2

REPORT INFORMATION
  Report Type: 
  Country: None (occurrence: None)
  Receive Date: 20120416
  Receipt Date: 20110707
  Transmission Date: 20120825
  Serious: Yes (Other)
  Sender: FDA-Public Use
  Company Number: PHHY2011US33411

PATIENT
  Sex: Female

DRUGS (10)
  1. ALLEGRA [Concomitant]
  2. PRILOSEC [Concomitant]
  3. CHANTIX [Concomitant]
  4. DIOVAN [Suspect]
     Indication: HYPERTENSION
     Dosage: 40 MG, QD ; 160 MG, QD
  5. METFFORMIN HYDROCHLORIDE [Concomitant]
  6. POTASSIUM CLAVULANATE (CLAVULANATE POTASSIUM) [Concomitant]
  7. ADVAIR HFA [Concomitant]
  8. SINGULAIR [Concomitant]
  9. WELLBUTRIN SR [Concomitant]
  10. SPIRONOLACTONE [Concomitant]

REACTIONS (3)
  - HYPERTENSION [None]
  - BLOOD PRESSURE INADEQUATELY CONTROLLED [None]
  - HEADACHE [None]
